FAERS Safety Report 4805171-0 (Version None)
Quarter: 2005Q4

REPORT INFORMATION
  Report Type: 
  Country: None (occurrence: None)
  Receive Date: 20051020
  Receipt Date: 20051013
  Transmission Date: 20060501
  Serious: Yes (Other)
  Sender: FDA-Public Use
  Company Number: US-ABBOTT-05P-163-0313665-00

PATIENT
  Age: 30 Year
  Sex: Female

DRUGS (7)
  1. NORVIR [Suspect]
     Indication: RETROVIRAL INFECTION
     Route: 048
     Dates: start: 20050824, end: 20050904
  2. NORVIR [Suspect]
     Route: 048
     Dates: end: 20050712
  3. LAMIVUDINE [Suspect]
     Indication: RETROVIRAL INFECTION
     Route: 048
     Dates: end: 20050712
  4. ABACAVIR SULFATE [Suspect]
     Indication: RETROVIRAL INFECTION
     Route: 048
     Dates: end: 20050712
  5. ATAZANAVIR SULFATE [Suspect]
     Indication: RETROVIRAL INFECTION
     Route: 048
     Dates: end: 20050712
  6. SAQUINAVIR MESILATE [Suspect]
     Indication: RETROVIRAL INFECTION
     Route: 048
     Dates: start: 20050824, end: 20050904
  7. ABACAVIR/LAMIVUDINE/ZIDOVUDINE [Suspect]
     Indication: RETROVIRAL INFECTION
     Route: 048
     Dates: start: 20050824, end: 20050904

REACTIONS (5)
  - ABORTION SPONTANEOUS [None]
  - AMNIOTIC FLUID VOLUME DECREASED [None]
  - DRUG EXPOSURE DURING PREGNANCY [None]
  - DRUG INTOLERANCE [None]
  - PREGNANCY [None]
